FAERS Safety Report 4687576-4 (Version None)
Quarter: 2005Q2

REPORT INFORMATION
  Report Type: 
  Country: None (occurrence: None)
  Receive Date: 20050610
  Receipt Date: 20050531
  Transmission Date: 20051028
  Serious: Yes (Hospitalization)
  Sender: FDA-Public Use
  Company Number: FR-BRISTOL-MYERS SQUIBB COMPANY-12989570

PATIENT
  Age: 7 Year
  Sex: Male
  Weight: 26 kg

DRUGS (5)
  1. FUNGIZONE [Suspect]
     Route: 042
     Dates: start: 20050427, end: 20050502
  2. AMBISOME [Suspect]
     Dosage: STOPPED ON 26-APR-2005;RE-STARTED ON 03-MAY-2005 TO UNSPECIFIED DATE;THEN 50 MG/D(UNSPECIFIED DATES)
     Route: 042
     Dates: start: 20050423
  3. ZOVIRAX [Suspect]
     Indication: VARICELLA
     Dosage: 03-MAY-2005 SWITCHED TO ORAL
     Route: 042
     Dates: start: 20050423, end: 20050503
  4. CLAFORAN [Concomitant]
     Route: 042
     Dates: start: 20050423, end: 20050101
  5. FOSFOMYCIN [Concomitant]
     Route: 042
     Dates: start: 20050423, end: 20050101

REACTIONS (6)
  - BLOOD CREATININE INCREASED [None]
  - BLOOD POTASSIUM INCREASED [None]
  - BLOOD UREA INCREASED [None]
  - GLOMERULONEPHRITIS [None]
  - HAEMATURIA [None]
  - PROTEINURIA [None]
